FAERS Safety Report 8244415-2 (Version None)
Quarter: 2012Q1

REPORT INFORMATION
  Report Type: 
  Country: None (occurrence: None)
  Receive Date: 20120329
  Receipt Date: 20120321
  Transmission Date: 20120608
  Serious: Yes (Hospitalization, Other)
  Sender: FDA-Public Use
  Company Number: US-ELI_LILLY_AND_COMPANY-US201203006748

PATIENT
  Sex: Male

DRUGS (18)
  1. VENTOLIN                                /SCH/ [Concomitant]
     Dosage: UNK, PRN
     Dates: start: 20091026
  2. FUROSEMIDE [Concomitant]
     Dosage: 40 MG, QD
     Dates: start: 20110228
  3. QUINAPRIL [Concomitant]
     Dosage: 20 MG, QD
     Dates: start: 20091026
  4. CALCIUM CARBONATE [Concomitant]
     Dosage: 1 DF, QD
  5. MAGNESIUM [Concomitant]
     Dosage: 1 DF, QD
     Dates: start: 20070430
  6. COUMADIN [Concomitant]
  7. RANEXA [Concomitant]
     Dosage: 500 MG, BID
     Dates: start: 20110822
  8. DOXAZOSIN MESYLATE [Concomitant]
     Dosage: 2 MG, BID
     Dates: start: 20110906
  9. METFORMIN HCL [Concomitant]
     Dosage: 1000 MG, BID
     Dates: start: 20070430
  10. FISH OIL [Concomitant]
     Dosage: 1 DF, QD
     Dates: start: 20070430
  11. METOPROLOL SUCCINATE [Concomitant]
     Dosage: 50 MG, BID
     Dates: start: 20070430
  12. SIMVASTATIN [Concomitant]
     Dosage: 40 MG, QD
     Dates: start: 20070430
  13. CINNAMON [Concomitant]
     Dosage: 500 MG, QD
     Dates: start: 20081124
  14. ASPIRIN [Concomitant]
     Indication: CORONARY ARTERY DISEASE
     Dosage: 81 MG, QD
     Dates: start: 20091026
  15. ZINC SULFATE [Concomitant]
     Dosage: 1 DF, QD
     Dates: start: 20070430
  16. EFFIENT [Suspect]
     Dosage: 10 MG, QD
     Dates: start: 20111006
  17. IMDUR [Concomitant]
     Dosage: 30 MG, BID
     Dates: start: 20110822
  18. POTASSIUM CHLORIDE [Concomitant]
     Dosage: 20 MEQ, QD
     Dates: start: 20110228

REACTIONS (3)
  - DIVERTICULITIS [None]
  - SYNCOPE [None]
  - LOWER GASTROINTESTINAL HAEMORRHAGE [None]
